FAERS Safety Report 6386301-9 (Version None)
Quarter: 2009Q4

REPORT INFORMATION
  Report Type: 
  Country: None (occurrence: None)
  Receive Date: 20091002
  Receipt Date: 20090928
  Transmission Date: 20100525
  Serious: Yes (Hospitalization)
  Sender: FDA-Public Use
  Company Number: US-AVENTIS-200913540GDDC

PATIENT
  Age: 38 Year
  Sex: Female

DRUGS (2)
  1. DOCETAXEL [Suspect]
     Dosage: DOSE: UNK
     Route: 042
  2. CYTOXAN [Suspect]
     Dosage: DOSE: UNK

REACTIONS (2)
  - DEEP VEIN THROMBOSIS [None]
  - MENTAL STATUS CHANGES [None]
